FAERS Safety Report 21891841 (Version 1)
Quarter: 2023Q1

REPORT INFORMATION
  Report Type: Spontaneous
  Country: US (occurrence: None)
  Receive Date: 20230120
  Receipt Date: 20230120
  Transmission Date: 20230418
  Serious: No
  Sender: FDA-Public Use
  Company Number: None

PATIENT
  Age: 39 Year
  Sex: Male
  Weight: 87.75 kg

DRUGS (1)
  1. HERBALS\MITRAGYNINE [Suspect]
     Active Substance: HERBALS\MITRAGYNINE
     Indication: Product used for unknown indication
     Dates: start: 20200415, end: 20220526

REACTIONS (16)
  - Drug dependence [None]
  - Depression [None]
  - Asthenia [None]
  - Restless legs syndrome [None]
  - Insomnia [None]
  - Feeling abnormal [None]
  - Thinking abnormal [None]
  - Impulsive behaviour [None]
  - Memory impairment [None]
  - Withdrawal syndrome [None]
  - Vomiting [None]
  - Diarrhoea [None]
  - Hyperhidrosis [None]
  - Tremor [None]
  - Suicidal ideation [None]
  - Emotional disorder [None]
